FAERS Safety Report 7499309-7 (Version None)
Quarter: 2011Q2

REPORT INFORMATION
  Report Type: 
  Country: None (occurrence: None)
  Receive Date: 20110524
  Receipt Date: 20110523
  Transmission Date: 20111010
  Serious: Yes (Life-Threatening, Hospitalization, Other)
  Sender: FDA-Public Use
  Company Number: DE-SANOFI-AVENTIS-2011SA029505

PATIENT
  Age: 76 Year
  Sex: Female
  Weight: 77 kg

DRUGS (9)
  1. FUROSEMIDE [Concomitant]
     Route: 048
     Dates: start: 20110225, end: 20110227
  2. MERZ SPEZIAL DRAGEES [Concomitant]
     Route: 048
     Dates: start: 20000101
  3. HERBAL PREPARATION [Concomitant]
     Route: 048
     Dates: start: 20110225, end: 20110225
  4. MULTAQ [Suspect]
     Indication: ATRIAL FIBRILLATION
     Dosage: 2X1 FILM-COATED TABLET AT 400 MG DAILY PER OS
     Route: 048
     Dates: start: 20110103, end: 20110226
  5. FUROSEMIDE [Concomitant]
     Route: 042
     Dates: start: 20110225, end: 20110225
  6. MARCUMAR [Concomitant]
     Route: 048
     Dates: start: 20090101
  7. NITROGLYCERIN SPRAY [Concomitant]
     Dosage: 1 DF = 1 PUFF
     Route: 055
     Dates: start: 20110225, end: 20110225
  8. METOPROLOL SUCCINATE [Concomitant]
     Dosage: DOSAGE: 1/2 TABLET TWICE A DAY
     Route: 048
     Dates: start: 20090101
  9. LANICOR [Concomitant]
     Route: 042
     Dates: start: 20110225, end: 20110225

REACTIONS (2)
  - TORSADE DE POINTES [None]
  - LONG QT SYNDROME [None]
